FAERS Safety Report 10152254 (Version 2)
Quarter: 2014Q2

REPORT INFORMATION
  Report Type: Report from Study
  Country: AU (occurrence: AU)
  Receive Date: 20140505
  Receipt Date: 20140505
  Transmission Date: 20141212
  Serious: Yes (Other)
  Sender: FDA-Public Use
  Company Number: PHHY2014AU045453

PATIENT
  Age: 35 Year
  Sex: Female
  Weight: 65 kg

DRUGS (13)
  1. ACLASTA [Suspect]
     Indication: OSTEOPOROSIS
     Dosage: 5 MG, IN 2011 ANNUALLY
     Route: 042
  2. ACLASTA [Suspect]
     Dosage: 5 MG, UNK
     Route: 042
     Dates: start: 20120202
  3. ACLASTA [Suspect]
     Dosage: 5 MG, UNK
     Route: 042
     Dates: start: 20130503
  4. BACLOFEN [Concomitant]
     Indication: MUSCLE SPASMS
     Dosage: 10 MG, BID
  5. EFFEXOR [Concomitant]
     Indication: DEPRESSION
     Dosage: 225 MG, DAILY
     Route: 048
  6. LYRICA [Concomitant]
     Indication: NEURALGIA
     Dosage: 50 MG, NOCTE
     Route: 048
  7. SIFROL [Concomitant]
     Indication: RESTLESS LEGS SYNDROME
     Dosage: 0.25 MG, NOCTE
     Route: 048
  8. SOMAC [Concomitant]
     Indication: GASTROOESOPHAGEAL REFLUX DISEASE
     Dosage: 40 MG, BID
     Route: 048
  9. TARGIN [Concomitant]
     Indication: PAIN
     Dosage: 5/2.5MG
     Route: 048
  10. VENTOLIN                           /00942701/ [Concomitant]
     Dosage: UNK UKN, UNK
     Route: 055
  11. SYMBICORT [Concomitant]
     Dosage: UNK UKN, UNK
     Route: 055
  12. OSTELIN VITAMIN D [Concomitant]
     Dosage: UNK UKN, UNK
  13. PANADOL [Concomitant]
     Dosage: UNK UKN, UNK

REACTIONS (2)
  - Post procedural complication [Unknown]
  - Alveolar osteitis [Recovering/Resolving]
